FAERS Safety Report 14909659 (Version 2)
Quarter: 2018Q2

REPORT INFORMATION
  Report Type: Report from Study
  Country: US (occurrence: US)
  Receive Date: 20180517
  Receipt Date: 20180621
  Transmission Date: 20180711
  Serious: Yes (Other)
  Sender: FDA-Public Use
  Company Number: US-GILEAD-2018-0338624

PATIENT
  Age: 51 Year
  Sex: Male
  Weight: 74.74 kg

DRUGS (1)
  1. LEDIPASVIR/SOFOSBUVIR [Suspect]
     Active Substance: LEDIPASVIR\SOFOSBUVIR
     Indication: CHRONIC HEPATITIS C
     Dosage: 1 DF, QD
     Route: 048
     Dates: start: 20170308, end: 20170614

REACTIONS (2)
  - Hepatitis C [Not Recovered/Not Resolved]
  - Drug abuser [Unknown]

NARRATIVE: CASE EVENT DATE: 20170501
